FAERS Safety Report 15781853 (Version 1)
Quarter: 2019Q1

REPORT INFORMATION
  Report Type: Spontaneous
  Country: US (occurrence: US)
  Receive Date: 20190102
  Receipt Date: 20190102
  Transmission Date: 20190417
  Serious: Yes (Hospitalization)
  Sender: FDA-Public Use
  Company Number: US-GALDERMA-US18052894

PATIENT
  Age: 21 Year
  Sex: Female

DRUGS (3)
  1. PROACTIV MD DEEP CLEANSING FACE WASH [Concomitant]
     Active Substance: COSMETICS
     Indication: ACNE
     Route: 061
     Dates: start: 20180928, end: 20180929
  2. PROACTIV GREEN TEA MOISTURIZER [Concomitant]
     Active Substance: COSMETICS
     Indication: ACNE
     Route: 061
     Dates: start: 20180928, end: 20180929
  3. PROACTIV MD ADAPALENE ACNE TREATMENT [Suspect]
     Active Substance: ADAPALENE
     Indication: ACNE
     Dosage: 0.1%
     Route: 061
     Dates: start: 20180928, end: 20180929

REACTIONS (8)
  - Acne [Recovered/Resolved]
  - Dry skin [Recovered/Resolved]
  - Hypersensitivity [Recovered/Resolved]
  - Rash papular [Recovered/Resolved]
  - Skin burning sensation [Recovered/Resolved]
  - Skin exfoliation [Recovered/Resolved]
  - Rash macular [Recovered/Resolved]
  - Pain of skin [Recovered/Resolved]

NARRATIVE: CASE EVENT DATE: 20180929
